FAERS Safety Report 7770019-1 (Version None)
Quarter: 2011Q3

REPORT INFORMATION
  Report Type: 
  Country: None (occurrence: None)
  Receive Date: 20110922
  Receipt Date: 20110720
  Transmission Date: 20111222
  Serious: Yes (Other)
  Sender: FDA-Public Use
  Company Number: US-ASTRAZENECA-2007UW27804

PATIENT
  Age: 49 Year
  Sex: Female
  Weight: 112.9 kg

DRUGS (26)
  1. SEROQUEL [Suspect]
     Dosage: 100 MG, 200 MG AND 800 MG
     Route: 048
     Dates: start: 20000101
  2. NEXIUM [Concomitant]
     Dates: start: 20070322
  3. GLUCOPHAGE [Concomitant]
     Dates: start: 20050317
  4. DILANTIN [Concomitant]
     Dates: start: 20070322
  5. IBUPROFEN [Concomitant]
     Dates: start: 20000606
  6. LISINOPRIL [Concomitant]
     Dosage: 20MG DISPENSED
     Dates: start: 20050308
  7. LIPITOR [Concomitant]
     Dates: start: 20060306
  8. PLAVIX [Concomitant]
     Dates: start: 20060306
  9. PAXIL [Concomitant]
     Dosage: 20MG DISPENSED
     Dates: start: 20000710
  10. NOVOLOG [Concomitant]
     Dosage: 10 UNITS THREE TIMES A DAY
     Dates: start: 20060306
  11. SEROQUEL [Suspect]
     Dosage: 100MG TO 800MG
     Route: 048
     Dates: start: 20040413
  12. AMBIEN [Concomitant]
     Dates: start: 20060306
  13. HYDROCODONE BITARTRATE AND ACETAMINOPHEN [Concomitant]
     Dosage: 5/500 DISPENSED
     Dates: start: 20051201
  14. WELLBUTRIN XL [Concomitant]
     Dates: start: 20060101
  15. AMBIEN [Concomitant]
     Dosage: 6.25MG TO 12.5MG
     Dates: start: 20020207
  16. PROTONIX [Concomitant]
     Dosage: 40 MG DISPENSED
     Dates: start: 20051201
  17. LEXAPRO [Concomitant]
     Dosage: 10MG DISPENSED
     Dates: start: 20051201
  18. CLONAZEPAM [Concomitant]
     Dosage: 0.5MG DISPENSED
     Dates: start: 20061109
  19. LYRICA [Concomitant]
     Dosage: 150MG DISPENSED
     Dates: start: 20070115
  20. SEROQUEL [Suspect]
     Indication: SCHIZOPHRENIA
     Dosage: 100 MG- 800 MG
     Route: 048
     Dates: start: 19991012
  21. WELLBUTRIN XL [Concomitant]
     Dosage: 300MG DISPENSED
     Dates: start: 20051201
  22. ANTARA (MICRONIZED) [Concomitant]
     Dosage: 130MG DISPENSED
     Dates: start: 20050406
  23. CVS ASPIRIN [Concomitant]
     Dosage: 81MG DISPENSED
     Dates: start: 20051202
  24. ENALAPRIL MALEATE [Concomitant]
     Dosage: 5MG DISPENSED
     Dates: start: 20070430
  25. ZETIA [Concomitant]
     Dates: start: 20051201
  26. ALPRAZOLAM [Concomitant]
     Dosage: 0.5MG TO 1.5MG
     Dates: start: 20000509

REACTIONS (9)
  - BLOOD CHOLESTEROL INCREASED [None]
  - BLOOD TRIGLYCERIDES INCREASED [None]
  - CEREBROVASCULAR ACCIDENT [None]
  - HEADACHE [None]
  - DIZZINESS [None]
  - HYPERLIPIDAEMIA [None]
  - DIABETES MELLITUS [None]
  - FALL [None]
  - THERMAL BURN [None]
